FAERS Safety Report 25923519 (Version 2)
Quarter: 2025Q4

REPORT INFORMATION
  Report Type: Spontaneous
  Country: US (occurrence: US)
  Receive Date: 20251015
  Receipt Date: 20251114
  Transmission Date: 20260118
  Serious: No
  Sender: TOLMAR
  Company Number: US-Tolmar-TLM-2025-07244

PATIENT

DRUGS (3)
  1. ELIGARD [Suspect]
     Active Substance: LEUPROLIDE ACETATE
     Indication: Prostate cancer
     Dosage: DOSE NOT ADMINISTERED?SERIAL NUMBER 7597622320129, ?GTIN 00362935227106?OCT-2026; SEP-2026; SEP-2026
     Route: 065
  2. ELIGARD [Suspect]
     Active Substance: LEUPROLIDE ACETATE
     Dosage: REPLACEMENT DOSE GIVEN
  3. DEVICE [Suspect]
     Active Substance: DEVICE
     Indication: Prostate cancer
     Dosage: OCT-2026; SEP-2026; SEP-2026

REACTIONS (5)
  - Circumstance or information capable of leading to medication error [Unknown]
  - Intercepted product preparation error [Unknown]
  - Wrong technique in product usage process [Unknown]
  - Device occlusion [Unknown]
  - Product quality issue [Unknown]
